FAERS Safety Report 12239275 (Version 2)
Quarter: 2017Q2

REPORT INFORMATION
  Report Type: Spontaneous
  Country: FR (occurrence: FR)
  Receive Date: 20160405
  Receipt Date: 20170531
  Transmission Date: 20170830
  Serious: Yes (Hospitalization)
  Sender: FDA-Public Use
  Company Number: FR-BAXTER-2016BAX016623

PATIENT
  Age: 52 Year
  Sex: Female

DRUGS (22)
  1. ROCEPHINE [Suspect]
     Active Substance: CEFTRIAXONE SODIUM
     Indication: PROPHYLAXIS
     Route: 042
     Dates: start: 20140607, end: 20140607
  2. SUFENTA [Suspect]
     Active Substance: SUFENTANIL CITRATE
     Indication: ANAESTHESIA PROCEDURE
     Route: 042
     Dates: start: 20140607, end: 20140607
  3. POLARAMINE [Concomitant]
     Active Substance: DEXCHLORPHENIRAMINE MALEATE
     Indication: EYELID OEDEMA
  4. ZALDIAR [Concomitant]
     Active Substance: ACETAMINOPHEN\TRAMADOL HYDROCHLORIDE
     Indication: PRODUCT USED FOR UNKNOWN INDICATION
     Route: 065
     Dates: start: 20140606
  5. POLARAMINE [Concomitant]
     Active Substance: DEXCHLORPHENIRAMINE MALEATE
     Indication: RHINORRHOEA
  6. XATRAL [Concomitant]
     Active Substance: ALFUZOSIN
     Indication: PAIN
  7. ASPEGIC [Concomitant]
     Active Substance: ASPIRIN DL-LYSINE
     Indication: PRODUCT USED FOR UNKNOWN INDICATION
     Route: 065
     Dates: start: 2004
  8. TOPALGIC (FRANCE) [Concomitant]
     Active Substance: TRAMADOL
     Indication: PYREXIA
     Route: 065
     Dates: start: 20140607
  9. GELOFUSINE [Suspect]
     Active Substance: GELATIN\SODIUM CHLORIDE
     Dosage: 25 CC
     Route: 042
     Dates: start: 20150922, end: 20150922
  10. TRACRIUM [Suspect]
     Active Substance: ATRACURIUM BESYLATE
     Indication: ANAESTHESIA PROCEDURE
     Route: 042
     Dates: start: 20140607, end: 20140607
  11. PARACETAMOL [Concomitant]
     Active Substance: ACETAMINOPHEN
     Indication: ANALGESIC THERAPY
     Route: 065
     Dates: start: 20140606
  12. PROPOFOL. [Suspect]
     Active Substance: PROPOFOL
     Indication: ANAESTHESIA PROCEDURE
     Route: 042
     Dates: start: 20140607, end: 20140607
  13. XATRAL [Concomitant]
     Active Substance: ALFUZOSIN
     Indication: PYREXIA
     Route: 065
     Dates: start: 20140607
  14. ROCEPHINE [Suspect]
     Active Substance: CEFTRIAXONE SODIUM
     Route: 042
     Dates: start: 20150421
  15. PARACETAMOL [Concomitant]
     Active Substance: ACETAMINOPHEN
     Route: 042
     Dates: start: 20140607
  16. SUPRANE [Suspect]
     Active Substance: DESFLURANE
     Indication: ANAESTHESIA PROCEDURE
     Route: 055
     Dates: start: 20140607, end: 20140607
  17. DEXAMETHASONE. [Suspect]
     Active Substance: DEXAMETHASONE
     Indication: ANAESTHESIA PROCEDURE
     Route: 042
     Dates: start: 20140607, end: 20140607
  18. GELOFUSINE [Suspect]
     Active Substance: GELATIN\SODIUM CHLORIDE
     Indication: ANAESTHESIA PROCEDURE
     Route: 042
     Dates: start: 20140607, end: 20140607
  19. GELOFUSINE [Suspect]
     Active Substance: GELATIN\SODIUM CHLORIDE
     Dosage: 3 INJECTION OF 5 CC
     Route: 042
     Dates: start: 20150708, end: 20150708
  20. GENTAMICINE [Suspect]
     Active Substance: GENTAMICIN
     Indication: PROPHYLAXIS
     Route: 042
     Dates: start: 20140607, end: 20140607
  21. POLARAMINE [Concomitant]
     Active Substance: DEXCHLORPHENIRAMINE MALEATE
     Indication: NASAL PRURITUS
     Route: 065
     Dates: start: 2004
  22. TOPALGIC (FRANCE) [Concomitant]
     Active Substance: TRAMADOL
     Indication: PAIN

REACTIONS (7)
  - Eye pruritus [Unknown]
  - Erythema [Unknown]
  - Anaphylactic reaction [Recovered/Resolved]
  - Eye pruritus [Recovered/Resolved]
  - Eye oedema [Recovered/Resolved]
  - Rhinorrhoea [Unknown]
  - Sneezing [Unknown]

NARRATIVE: CASE EVENT DATE: 20140607
